FAERS Safety Report 21441320 (Version 1)
Quarter: 2022Q4

REPORT INFORMATION
  Report Type: Report from Study
  Country: US (occurrence: US)
  Receive Date: 20221011
  Receipt Date: 20221011
  Transmission Date: 20230113
  Serious: No
  Sender: FDA-Public Use
  Company Number: US-ABBVIE-4146835

PATIENT
  Sex: Male

DRUGS (4)
  1. SKYRIZI [Suspect]
     Active Substance: RISANKIZUMAB-RZAA
     Indication: Psoriasis
     Dosage: WEEK ZERO
     Route: 058
     Dates: start: 202207, end: 202207
  2. SKYRIZI [Suspect]
     Active Substance: RISANKIZUMAB-RZAA
     Dosage: WEEK FOUR
     Route: 058
     Dates: start: 20220815
  3. IBUPROFEN [Concomitant]
     Active Substance: IBUPROFEN
     Indication: Gastroenteritis viral
  4. TYLENOL [Concomitant]
     Active Substance: ACETAMINOPHEN
     Indication: Gastroenteritis viral

REACTIONS (7)
  - Gastroenteritis viral [Unknown]
  - Throat irritation [Recovered/Resolved]
  - Erythema [Unknown]
  - Eye discharge [Recovered/Resolved]
  - Skin burning sensation [Unknown]
  - Skin fissures [Unknown]
  - Illness [Unknown]

NARRATIVE: CASE EVENT DATE: 20220101
